FAERS Safety Report 5928507-6 (Version None)
Quarter: 2008Q4

REPORT INFORMATION
  Report Type: 
  Country: None (occurrence: None)
  Receive Date: 20081023
  Receipt Date: 20081013
  Transmission Date: 20090506
  Serious: Yes (Hospitalization)
  Sender: FDA-Public Use
  Company Number: US-WATSON-2008-06137

PATIENT
  Sex: Male

DRUGS (2)
  1. FENTANYL-25 [Suspect]
     Indication: ARTHRALGIA
     Dosage: APPLICATION OF EXPOSED 1/2 PATCH, SINGLE
     Route: 062
     Dates: start: 20080620, end: 20080623
  2. COUMADIN [Concomitant]
     Indication: ANTICOAGULANT THERAPY
     Dosage: 2.5 MG, DAILY
     Route: 048
     Dates: start: 20080201

REACTIONS (6)
  - CONFUSIONAL STATE [None]
  - FACIAL BONES FRACTURE [None]
  - FALL [None]
  - HALLUCINATION [None]
  - SOMNOLENCE [None]
  - URINARY INCONTINENCE [None]
